FAERS Safety Report 16314616 (Version 2)
Quarter: 2019Q2

REPORT INFORMATION
  Report Type: Spontaneous
  Country: DE (occurrence: DE)
  Receive Date: 20190515
  Receipt Date: 20190528
  Transmission Date: 20190711
  Serious: Yes (Hospitalization)
  Sender: FDA-Public Use
  Company Number: DE-MYLANLABS-2009S1003405

PATIENT
  Age: 68 Year
  Sex: Male

DRUGS (30)
  1. BELOC ZOK [Concomitant]
     Active Substance: METOPROLOL SUCCINATE
     Indication: ARRHYTHMIA
     Dosage: 95 MG,BID (190 MG,QD)
     Route: 048
     Dates: start: 20001001
  2. SORAFENIB [Suspect]
     Active Substance: SORAFENIB
     Indication: METASTATIC RENAL CELL CARCINOMA
     Dosage: 200 MG, BID
     Route: 048
     Dates: start: 20080608, end: 20080809
  3. NEXAVAR [Suspect]
     Active Substance: SORAFENIB
     Indication: METASTATIC RENAL CELL CARCINOMA
     Dosage: NO ADVERSE EVENT
     Route: 048
     Dates: start: 20080603, end: 20080604
  4. NEXAVAR [Suspect]
     Active Substance: SORAFENIB
     Dosage: DAILY DOSE 600 MG (200 MG MORINING, 400 MG EVENING)
     Route: 048
     Dates: start: 20080709, end: 20080809
  5. AMARYL [Concomitant]
     Active Substance: GLIMEPIRIDE
     Indication: TYPE 2 DIABETES MELLITUS
     Dosage: 1 MG,QD
     Route: 048
     Dates: start: 20080201
  6. TAMSULOSIN [Suspect]
     Active Substance: TAMSULOSIN
     Indication: BENIGN PROSTATIC HYPERPLASIA
     Dosage: .4 MG,QD (ADMINISTRATED SINCE MANY YEARS)
     Route: 048
  7. LISINOPRIL. [Suspect]
     Active Substance: LISINOPRIL
     Dosage: 30 MG, QD(20 MORNING, 10MG EVENING)
     Route: 048
     Dates: start: 1996, end: 20071027
  8. NEXAVAR [Suspect]
     Active Substance: SORAFENIB
     Dosage: 400 MILLIGRAM, QD
     Route: 048
     Dates: start: 20080910
  9. GLUCOBAY [Concomitant]
     Active Substance: ACARBOSE
     Indication: TYPE 2 DIABETES MELLITUS
     Dosage: 50 MG,TID
     Route: 048
     Dates: start: 1996
  10. LOCOL                              /01224502/ [Concomitant]
     Active Substance: FLUVASTATIN SODIUM
     Indication: HYPERLIPIDAEMIA
     Dosage: 80 MG,QD
     Route: 048
     Dates: start: 20080601
  11. THIAMAZOLE [Concomitant]
     Active Substance: METHIMAZOLE
     Indication: PRODUCT USED FOR UNKNOWN INDICATION
     Dosage: UNK
     Dates: start: 20080201
  12. ASPIRIN. [Concomitant]
     Active Substance: ASPIRIN
     Indication: CORONARY ARTERY DISEASE
     Dosage: 100 MG,QD
     Route: 048
     Dates: start: 20001101
  13. CLOPIDOGREL [Concomitant]
     Active Substance: CLOPIDOGREL BISULFATE
     Indication: STENT PLACEMENT
     Dosage: 75 MG,QD
     Route: 048
     Dates: start: 20080301
  14. TOREM                              /01036501/ [Concomitant]
     Active Substance: TORSEMIDE
     Indication: CARDIAC FAILURE
     Dosage: 5 MG,QD
     Route: 048
     Dates: start: 20080601
  15. CLOPIDOGREL [Concomitant]
     Active Substance: CLOPIDOGREL BISULFATE
     Indication: PRODUCT USED FOR UNKNOWN INDICATION
     Dosage: UNK
     Dates: start: 20080301
  16. METOPROLOL. [Concomitant]
     Active Substance: METOPROLOL
     Indication: PRODUCT USED FOR UNKNOWN INDICATION
     Dosage: UNK
     Dates: start: 20001001
  17. LISINOPRIL. [Suspect]
     Active Substance: LISINOPRIL
     Indication: HYPERTENSION
     Dosage: 10 MG,BID
     Route: 048
     Dates: start: 1996, end: 20081027
  18. ZOLEDRONIC ACID [Suspect]
     Active Substance: ZOLEDRONIC ACID
     Indication: METASTASES TO BONE
     Dosage: 4 MG,MONTHLY
     Route: 042
     Dates: start: 20080618, end: 20080716
  19. ALDACTONE [Concomitant]
     Active Substance: SPIRONOLACTONE
     Indication: CARDIAC FAILURE
     Dosage: 25 MG,QD
     Route: 048
     Dates: start: 20080601
  20. DIGITOXIN [Concomitant]
     Active Substance: DIGITOXIN
     Indication: CARDIAC FAILURE
     Dosage: 0.007 MILLIGRAM, QD
     Route: 048
     Dates: start: 20080601
  21. METHIZOL [Concomitant]
     Active Substance: METHIMAZOLE
     Indication: HYPERTHYROIDISM
     Dosage: 5 MG,QD,5 MG/DAY
     Route: 048
     Dates: start: 20080201
  22. ACARBOSE. [Concomitant]
     Active Substance: ACARBOSE
     Indication: PRODUCT USED FOR UNKNOWN INDICATION
     Dosage: UNK
     Dates: start: 1996
  23. SORAFENIB [Suspect]
     Active Substance: SORAFENIB
     Dosage: 3 DF, UNK(1 DF MORNING, 2DF EVENING)
     Route: 048
     Dates: start: 20080910
  24. PARACETAMOL [Concomitant]
     Active Substance: ACETAMINOPHEN
     Indication: PAIN
     Dosage: UNK
     Dates: start: 20080807, end: 20080809
  25. PARACETAMOL [Concomitant]
     Active Substance: ACETAMINOPHEN
     Dosage: UNK
     Dates: start: 20080717, end: 20080719
  26. AMLODIPINE [Suspect]
     Active Substance: AMLODIPINE BESYLATE
     Indication: HYPERTENSION
     Dosage: 5 MG,BID (10 MG, QD)
     Route: 048
     Dates: start: 20080601
  27. NEXAVAR [Suspect]
     Active Substance: SORAFENIB
     Dosage: UNK
     Route: 048
     Dates: start: 20080608, end: 20080809
  28. NEXAVAR [Suspect]
     Active Substance: SORAFENIB
     Dosage: 400 MILLIGRAM, QD
     Route: 048
     Dates: start: 20080608, end: 20080709
  29. PARACETAMOL [Concomitant]
     Active Substance: ACETAMINOPHEN
     Indication: BODY TEMPERATURE INCREASED
     Dosage: 500 MG,QID
     Route: 048
     Dates: start: 20080807, end: 20080809
  30. PENTALONG [Concomitant]
     Active Substance: PENTAERYTHRITOL TETRANITRATE
     Indication: CORONARY ARTERY DISEASE
     Dosage: 80 MG,TID (240 MG ,QD)
     Route: 048
     Dates: start: 20060601

REACTIONS (13)
  - Albumin urine present [Unknown]
  - Dysphagia [Unknown]
  - Speech disorder [Recovered/Resolved]
  - Angioedema [Recovered/Resolved]
  - Platelet count increased [Unknown]
  - Blood sodium decreased [Unknown]
  - Haemoglobin decreased [Unknown]
  - Lip swelling [Recovered/Resolved]
  - Red blood cell sedimentation rate increased [Unknown]
  - Gamma-glutamyltransferase increased [Unknown]
  - Mouth swelling [Recovered/Resolved]
  - C-reactive protein increased [Unknown]
  - Swollen tongue [Recovered/Resolved]

NARRATIVE: CASE EVENT DATE: 20080810
